FAERS Safety Report 10932638 (Version 1)
Quarter: 2015Q1

REPORT INFORMATION
  Report Type: Spontaneous
  Country: US (occurrence: None)
  Receive Date: 20150319
  Receipt Date: 20150319
  Transmission Date: 20150721
  Serious: No
  Sender: FDA-Public Use
  Company Number: None

PATIENT
  Age: 50 Year
  Sex: Male

DRUGS (1)
  1. ESZOPICLONE 3 MG LUPIN PHARMAC [Suspect]
     Active Substance: ESZOPICLONE
     Indication: INSOMNIA
     Dosage: 1 TABLET BY MOUTH AT BED TIME AT BEDTIME TAKEN BY MOUTH
     Route: 048
     Dates: start: 20150316, end: 20150318

REACTIONS (4)
  - Drug ineffective [None]
  - Product substitution issue [None]
  - Product quality issue [None]
  - Product taste abnormal [None]

NARRATIVE: CASE EVENT DATE: 20150316
